FAERS Safety Report 8104088-6 (Version None)
Quarter: 2012Q1

REPORT INFORMATION
  Report Type: 
  Country: None (occurrence: None)
  Receive Date: 20120201
  Receipt Date: 20120131
  Transmission Date: 20120608
  Serious: No
  Sender: FDA-Public Use
  Company Number: US-PFIZER INC-2012026927

PATIENT
  Sex: Male

DRUGS (3)
  1. CHANTIX [Suspect]
     Indication: SMOKING CESSATION THERAPY
     Dosage: 0.5 MG, DAILY
     Route: 048
     Dates: start: 20090301, end: 20090401
  2. CHANTIX [Suspect]
     Dosage: 0.5 MG, DAILY
     Dates: start: 20101101, end: 20110101
  3. CHANTIX [Suspect]
     Dosage: 0.5 MG, DAILY
     Dates: start: 20120110

REACTIONS (4)
  - ORAL PAIN [None]
  - SWOLLEN TONGUE [None]
  - INSOMNIA [None]
  - FLATULENCE [None]
